FAERS Safety Report 9405002 (Version 2)
Quarter: 2013Q3

REPORT INFORMATION
  Report Type: Report from Study
  Country: CA (occurrence: CA)
  Receive Date: 20130717
  Receipt Date: 20130729
  Transmission Date: 20140515
  Serious: Yes (Other)
  Sender: FDA-Public Use
  Company Number: CA-JNJFOC-20130704825

PATIENT
  Age: 56 Year
  Sex: Male
  Weight: 102.06 kg

DRUGS (13)
  1. REMICADE [Suspect]
     Indication: CROHN^S DISEASE
     Route: 042
     Dates: start: 20130621
  2. Z PACK [Suspect]
     Indication: SINUSITIS
     Route: 065
     Dates: start: 2013, end: 2013
  3. METFORMIN [Concomitant]
     Indication: DIABETES MELLITUS
     Dosage: FOR PAST FEW YEARS
     Route: 065
  4. CLONAZEPAM [Concomitant]
     Indication: ANXIETY
     Dosage: 1-2 MG AS NEEDED SINCE 18 YEARS
     Route: 065
  5. TECTA [Concomitant]
     Indication: GASTRIC DISORDER
     Dosage: FOR 20 YEARS
     Route: 065
  6. ATROVENT [Concomitant]
     Dosage: 2 PUFFS 4 TIMES A DAY
     Route: 065
  7. PREDNISONE [Concomitant]
     Dosage: FINISHED A FEW DAYS AGO FROM DATE OF REPORT
     Route: 065
     Dates: start: 201305
  8. VITAMIN D3 [Concomitant]
     Route: 065
  9. ATENOLOL [Concomitant]
     Indication: BLOOD PRESSURE
     Dosage: FOR PAST SEVERAL YEARS
     Route: 065
  10. FLUTICASONE [Concomitant]
     Dosage: 2 EACH NOSTRIL IN THE MORNING
     Route: 045
  11. PRESERVISION [Concomitant]
     Indication: VITAMIN SUPPLEMENTATION
     Route: 065
  12. PURINETHOL [Concomitant]
     Indication: CROHN^S DISEASE
     Route: 065
     Dates: start: 2013
  13. VITAMIN D [Concomitant]
     Route: 065

REACTIONS (3)
  - Haematemesis [Unknown]
  - Sinusitis [Unknown]
  - Respiratory tract congestion [Unknown]
